FAERS Safety Report 15771795 (Version 1)
Quarter: 2018Q4

REPORT INFORMATION
  Report Type: Spontaneous
  Country: US (occurrence: US)
  Receive Date: 20181228
  Receipt Date: 20181228
  Transmission Date: 20190205
  Serious: Yes (Death)
  Sender: FDA-Public Use
  Company Number: None

PATIENT
  Age: 52 Year
  Sex: Male
  Weight: 79.6 kg

DRUGS (7)
  1. ENTRESTO [Concomitant]
     Active Substance: SACUBITRIL\VALSARTAN
  2. COREG [Concomitant]
     Active Substance: CARVEDILOL
  3. HYDRALAZINE [Concomitant]
     Active Substance: HYDRALAZINE HYDROCHLORIDE
  4. GABAPENTIN. [Concomitant]
     Active Substance: GABAPENTIN
  5. ALLOPURINOL. [Concomitant]
     Active Substance: ALLOPURINOL
  6. NORVASC [Concomitant]
     Active Substance: AMLODIPINE BESYLATE
  7. BRIDION [Suspect]
     Active Substance: SUGAMMADEX
     Indication: NEUROMUSCULAR BLOCKADE REVERSAL
     Dates: start: 20181207, end: 20181207

REACTIONS (5)
  - Heart rate decreased [None]
  - Apnoea [None]
  - Electrocardiogram QRS complex abnormal [None]
  - Electrocardiogram ST segment elevation [None]
  - Circulatory collapse [None]

NARRATIVE: CASE EVENT DATE: 20181207
